FAERS Safety Report 15721001 (Version 1)
Quarter: 2018Q4

REPORT INFORMATION
  Report Type: Spontaneous
  Country: BR (occurrence: BR)
  Receive Date: 20181214
  Receipt Date: 20181214
  Transmission Date: 20190205
  Serious: Yes (Other)
  Sender: FDA-Public Use
  Company Number: BR-LEO PHARMA-313757

PATIENT
  Age: 31 Year
  Sex: Female

DRUGS (2)
  1. SKINOREN GEL [Suspect]
     Active Substance: AZELAIC ACID
     Indication: SKIN DISCOLOURATION
     Dosage: APPLIED ON FACE ACCORDING TO LABEL
     Route: 061
     Dates: start: 20180924
  2. SELOZOK [Concomitant]
     Active Substance: METOPROLOL SUCCINATE
     Indication: HYPERTENSION
     Dosage: 25 MG, QD

REACTIONS (3)
  - Dysgeusia [Recovered/Resolved]
  - Product use in unapproved indication [Unknown]
  - Helicobacter gastritis [Unknown]

NARRATIVE: CASE EVENT DATE: 2018
